FAERS Safety Report 23118259 (Version 2)
Quarter: 2023Q4

REPORT INFORMATION
  Report Type: Report from Study
  Country: US (occurrence: US)
  Receive Date: 20231027
  Receipt Date: 20231101
  Transmission Date: 20240109
  Serious: Yes (Other)
  Sender: FDA-Public Use
  Company Number: US-ABBVIE-5469479

PATIENT
  Sex: Male

DRUGS (2)
  1. SKYRIZI [Suspect]
     Active Substance: RISANKIZUMAB-RZAA
     Indication: Psoriasis
     Dosage: WEEK 0?STRENGTH 150MG/ML
     Route: 058
     Dates: start: 202308, end: 202308
  2. SKYRIZI [Suspect]
     Active Substance: RISANKIZUMAB-RZAA
     Dosage: WEEK 4?STRENGTH 150MG/ML?EVERY 12 WEEKS THEREAFTER
     Route: 058
     Dates: start: 202309

REACTIONS (7)
  - Intervertebral disc protrusion [Unknown]
  - Pain [Unknown]
  - Nerve injury [Unknown]
  - Impaired healing [Unknown]
  - Wound secretion [Unknown]
  - Wound complication [Unknown]
  - Hypoaesthesia [Unknown]

NARRATIVE: CASE EVENT DATE: 20230101
